FAERS Safety Report 18753681 (Version 2)
Quarter: 2021Q2

REPORT INFORMATION
  Report Type: Report from Study
  Country: US (occurrence: US)
  Receive Date: 20210118
  Receipt Date: 20210618
  Transmission Date: 20210717
  Serious: Yes (Hospitalization)
  Sender: FDA-Public Use
  Company Number: US-JNJFOC-20191221716

PATIENT
  Age: 32 Year
  Sex: Female
  Weight: 67 kg

DRUGS (11)
  1. TYLENOL [Concomitant]
     Active Substance: ACETAMINOPHEN
     Indication: PAIN
     Dates: start: 2003
  2. DILAUDID [Concomitant]
     Active Substance: HYDROMORPHONE HYDROCHLORIDE
     Indication: CROHN^S DISEASE
     Dates: start: 20210220, end: 20210221
  3. AZATHIOPRINE. [Concomitant]
     Active Substance: AZATHIOPRINE
     Indication: CROHN^S DISEASE
     Route: 065
     Dates: start: 20210223, end: 20210313
  4. USTEKINUMAB [Suspect]
     Active Substance: USTEKINUMAB
     Indication: CROHN^S DISEASE
     Dosage: ONCE
     Route: 042
     Dates: start: 20191205, end: 20191205
  5. BUDESONIDE. [Concomitant]
     Active Substance: BUDESONIDE
     Indication: CROHN^S DISEASE
     Dates: start: 20191024
  6. NORETHINDRONE                      /00044901/ [Concomitant]
     Active Substance: NORETHINDRONE
     Indication: CONTRACEPTION
     Dates: start: 20180917
  7. IOHEXOL [Concomitant]
     Active Substance: IOHEXOL
     Indication: CROHN^S DISEASE
     Dates: start: 20210220, end: 20210220
  8. NIFEDIPINE. [Concomitant]
     Active Substance: NIFEDIPINE
     Indication: ANAL FISSURE
     Dosage: 1 APPLICATION
     Route: 061
     Dates: start: 20191024
  9. FLONASE                            /00908302/ [Concomitant]
     Active Substance: MOMETASONE FUROATE
     Indication: SEASONAL ALLERGY
     Dates: start: 2012, end: 2018
  10. COVID?19 VACCINE [Concomitant]
     Route: 065
     Dates: start: 20210325, end: 20210325
  11. COVID?19 VACCINE [Concomitant]
     Route: 065
     Dates: start: 20210507, end: 20210507

REACTIONS (1)
  - Rectal abscess [Recovered/Resolved]

NARRATIVE: CASE EVENT DATE: 20191206
